FAERS Safety Report 7281500-6 (Version None)
Quarter: 2011Q1

REPORT INFORMATION
  Report Type: 
  Country: None (occurrence: None)
  Receive Date: 20110208
  Receipt Date: 20110126
  Transmission Date: 20110831
  Serious: Yes (Other)
  Sender: FDA-Public Use
  Company Number: PHFR2011GB00682

PATIENT
  Sex: Male

DRUGS (2)
  1. CLOZARIL [Suspect]
     Indication: SCHIZOPHRENIA
     Dosage: UNK MG, UNK
     Route: 048
     Dates: start: 20100211
  2. ANTIEPILEPTICS [Concomitant]
     Indication: EPILEPSY
     Dosage: UNK DF, UNK

REACTIONS (8)
  - EPILEPSY [None]
  - GAIT DISTURBANCE [None]
  - ANAEMIA [None]
  - CONFUSIONAL STATE [None]
  - ANGINA PECTORIS [None]
  - HALLUCINATION, AUDITORY [None]
  - PARANOIA [None]
  - DRUG INEFFECTIVE [None]
